FAERS Safety Report 17584883 (Version 7)
Quarter: 2020Q4

REPORT INFORMATION
  Report Type: Report from Study
  Country: US (occurrence: US)
  Receive Date: 20200326
  Receipt Date: 20201210
  Transmission Date: 20210113
  Serious: Yes (Hospitalization, Other)
  Sender: FDA-Public Use
  Company Number: NVSC2020US079208

PATIENT
  Age: 63 Year
  Sex: Female

DRUGS (3)
  1. ENTRESTO [Suspect]
     Active Substance: SACUBITRIL\VALSARTAN
     Indication: CARDIAC FAILURE CONGESTIVE
     Dosage: 1 DF, BID
     Route: 048
     Dates: start: 2018
  2. ENTRESTO [Suspect]
     Active Substance: SACUBITRIL\VALSARTAN
     Dosage: 1 DF, BID (24/26MG)
     Route: 048
     Dates: start: 2019
  3. METOPROLOL. [Concomitant]
     Active Substance: METOPROLOL
     Indication: PRODUCT USED FOR UNKNOWN INDICATION
     Dosage: 1 UNK, BID (1 TABLET AT AM AND HALF TABLET PM)
     Dates: start: 202004

REACTIONS (11)
  - Atrial fibrillation [Recovering/Resolving]
  - Stress [Unknown]
  - Weight increased [Unknown]
  - Throat clearing [Unknown]
  - Fatigue [Recovering/Resolving]
  - Ventricular tachycardia [Recovered/Resolved]
  - Cardiac failure [Unknown]
  - Sleep apnoea syndrome [Unknown]
  - Seasonal allergy [Unknown]
  - Palpitations [Unknown]
  - Dyspnoea [Recovering/Resolving]

NARRATIVE: CASE EVENT DATE: 201901
